FAERS Safety Report 19739923 (Version 4)
Quarter: 2021Q4

REPORT INFORMATION
  Report Type: Spontaneous
  Country: GB (occurrence: GB)
  Receive Date: 20210823
  Receipt Date: 20211113
  Transmission Date: 20220303
  Serious: Yes (Death, Hospitalization, Other)
  Sender: FDA-Public Use
  Company Number: NVSC2021GB189334

PATIENT
  Age: 65 Year
  Sex: Male

DRUGS (2)
  1. METHOTREXATE [Suspect]
     Active Substance: METHOTREXATE
     Indication: Dermatitis atopic
     Dosage: UNK
     Route: 065
  2. DUPILUMAB [Suspect]
     Active Substance: DUPILUMAB
     Indication: Dermatitis atopic
     Dosage: UNK
     Route: 058

REACTIONS (5)
  - Bronchiectasis [Fatal]
  - Lower respiratory tract infection [Unknown]
  - Alopecia universalis [Unknown]
  - Alopecia [Unknown]
  - Off label use [Unknown]
